FAERS Safety Report 10383773 (Version 2)
Quarter: 2014Q3

REPORT INFORMATION
  Report Type: Other
  Country: US (occurrence: US)
  Receive Date: 20140814
  Receipt Date: 20140814
  Transmission Date: 20150326
  Serious: Yes (Death)
  Sender: FDA-Public Use
  Company Number: US-SHIRE-ALL1-2014-00635

PATIENT
  Age: 57 Year
  Sex: Male

DRUGS (6)
  1. CINRYZE [Suspect]
     Active Substance: HUMAN C1-ESTERASE INHIBITOR
     Dosage: 1500 UNITS, OTHER (3 TIMES A WEEK)
     Route: 042
     Dates: start: 20110106
  2. BERINERT [Concomitant]
     Active Substance: HUMAN C1-ESTERASE INHIBITOR
     Indication: HEREDITARY ANGIOEDEMA
     Dosage: UNK, UNKNOWN
     Route: 065
  3. FIRAZYR [Suspect]
     Active Substance: ICATIBANT ACETATE
     Indication: HEREDITARY ANGIOEDEMA
     Dosage: 3ML SYRINGE/30 MG, AS REQ^D
     Route: 058
     Dates: start: 201204
  4. CINRYZE [Suspect]
     Active Substance: HUMAN C1-ESTERASE INHIBITOR
     Dosage: 1000 UNITS, OTHER (3 TIMES A WEEK)
     Route: 042
     Dates: start: 201101, end: 2011
  5. CINRYZE [Suspect]
     Active Substance: HUMAN C1-ESTERASE INHIBITOR
     Dosage: 2000 UNITS, OTHER (EVERY 3 DAYS FOR TWO WEEKS)
     Route: 042
     Dates: start: 201201, end: 2012
  6. CINRYZE [Suspect]
     Active Substance: HUMAN C1-ESTERASE INHIBITOR
     Indication: HEREDITARY ANGIOEDEMA
     Dosage: 1500 UNITS, OTHER (3 TIMES A WEEK)
     Route: 042
     Dates: start: 2012

REACTIONS (6)
  - Chest pain [Fatal]
  - Myocardial infarction [Fatal]
  - Inappropriate schedule of drug administration [Not Recovered/Not Resolved]
  - Unresponsive to stimuli [Fatal]
  - Prescribed overdose [Not Recovered/Not Resolved]
  - Hereditary angioedema [Not Recovered/Not Resolved]

NARRATIVE: CASE EVENT DATE: 20140125
